FAERS Safety Report 8183232-9 (Version None)
Quarter: 2012Q1

REPORT INFORMATION
  Report Type: 
  Country: None (occurrence: None)
  Receive Date: 20120305
  Receipt Date: 20120224
  Transmission Date: 20120608
  Serious: Yes (Hospitalization)
  Sender: FDA-Public Use
  Company Number: JP-ASTELLAS-2012JP001200

PATIENT
  Age: 84 Year
  Sex: Male

DRUGS (2)
  1. VESICARE [Suspect]
     Route: 048
  2. FLIVAS [Concomitant]
     Route: 065

REACTIONS (2)
  - HALLUCINATION, AUDITORY [None]
  - VENOUS THROMBOSIS [None]
